FAERS Safety Report 8043493-3 (Version None)
Quarter: 2012Q1

REPORT INFORMATION
  Report Type: 
  Country: None (occurrence: None)
  Receive Date: 20120112
  Receipt Date: 20120111
  Transmission Date: 20120608
  Serious: Yes (Disabling, Other)
  Sender: FDA-Public Use
  Company Number: US-PFIZER INC-2012009097

PATIENT
  Sex: Female
  Weight: 68.027 kg

DRUGS (1)
  1. CHANTIX [Suspect]
     Indication: SMOKING CESSATION THERAPY
     Dosage: 0.5 MG, DAILY
     Route: 048
     Dates: start: 20070101

REACTIONS (7)
  - LOWER LIMB FRACTURE [None]
  - INJURY [None]
  - CARTILAGE INJURY [None]
  - INTERVERTEBRAL DISC PROTRUSION [None]
  - FALL [None]
  - SPINAL FRACTURE [None]
  - STRESS [None]
